FAERS Safety Report 22218949 (Version 2)
Quarter: 2023Q2

REPORT INFORMATION
  Report Type: Report from Study
  Country: US (occurrence: US)
  Receive Date: 20230417
  Receipt Date: 20230630
  Transmission Date: 20230721
  Serious: Yes (Other)
  Sender: FDA-Public Use
  Company Number: US-ABBVIE-4728976

PATIENT
  Age: 71 Year
  Sex: Female

DRUGS (1)
  1. VENCLEXTA [Suspect]
     Active Substance: VENETOCLAX
     Indication: Acute myeloid leukaemia
     Route: 048
     Dates: start: 20220728

REACTIONS (11)
  - Platelet count decreased [Unknown]
  - Brain fog [Unknown]
  - Attention deficit hyperactivity disorder [Unknown]
  - Spinal compression fracture [Unknown]
  - Intervertebral disc degeneration [Unknown]
  - Weight decreased [Unknown]
  - Magnetic resonance imaging abnormal [Unknown]
  - Spinal pain [Unknown]
  - Stress [Unknown]
  - Back pain [Unknown]
  - Arthralgia [Unknown]

NARRATIVE: CASE EVENT DATE: 20230325
